FAERS Safety Report 14325478 (Version 4)
Quarter: 2019Q2

REPORT INFORMATION
  Report Type: Report from Study
  Country: GB (occurrence: GB)
  Receive Date: 20171226
  Receipt Date: 20190429
  Transmission Date: 20190711
  Serious: Yes (Life-Threatening, Hospitalization, Disabling, Other)
  Sender: FDA-Public Use
  Company Number: GB-MYLANLABS-2017M1081840

PATIENT
  Age: 16 Year
  Sex: Female
  Weight: 64.8 kg

DRUGS (14)
  1. HUMIRA [Suspect]
     Active Substance: ADALIMUMAB
     Dosage: 40 MG, BIWEEKLY
     Route: 058
     Dates: start: 20170221, end: 20170612
  2. AZATHIOPRINE. [Suspect]
     Active Substance: AZATHIOPRINE
     Dosage: 125 MILLIGRAM, QD
     Route: 048
     Dates: start: 20160601, end: 20170129
  3. AZATHIOPRINE. [Suspect]
     Active Substance: AZATHIOPRINE
     Indication: CROHN^S DISEASE
     Dosage: 1 DOSAGE FORM, QD
     Route: 048
     Dates: start: 20160601, end: 2016
  4. HUMIRA [Suspect]
     Active Substance: ADALIMUMAB
     Indication: CROHN^S DISEASE
     Dosage: UNK
     Route: 058
  5. HUMIRA [Suspect]
     Active Substance: ADALIMUMAB
     Dosage: 80 MG, QW
     Route: 058
     Dates: start: 20170927, end: 20171018
  6. HUMIRA [Suspect]
     Active Substance: ADALIMUMAB
     Dosage: 40 MILLIGRAM, BIWEEKLY
     Route: 058
     Dates: start: 20180131, end: 20180228
  7. HUMIRA [Suspect]
     Active Substance: ADALIMUMAB
     Dosage: 40 MILLIGRAM, QW
     Route: 058
     Dates: start: 20171025, end: 20171206
  8. HUMIRA [Suspect]
     Active Substance: ADALIMUMAB
     Dosage: 40 MILLIGRAM, BIWEEKLY
     Route: 058
     Dates: start: 20171220, end: 20180103
  9. AZATHIOPRINE. [Suspect]
     Active Substance: AZATHIOPRINE
     Dosage: 125 MILLIGRAM, QD
     Route: 048
     Dates: start: 20161206, end: 20170130
  10. AZATHIOPRINE. [Suspect]
     Active Substance: AZATHIOPRINE
     Dosage: 125 MILLIGRAM, QD
     Route: 048
     Dates: start: 20171020
  11. HUMIRA [Suspect]
     Active Substance: ADALIMUMAB
     Dosage: 40 MILLIGRAM, QW
     Route: 058
     Dates: start: 20170613, end: 20170620
  12. HUMIRA [Suspect]
     Active Substance: ADALIMUMAB
     Dosage: 40 MG, BIWEEKLY
     Route: 058
     Dates: start: 20161206, end: 20170130
  13. HUMIRA [Suspect]
     Active Substance: ADALIMUMAB
     Dosage: 40 MG, QW
     Route: 058
     Dates: start: 20170808, end: 20170921
  14. HUMIRA [Suspect]
     Active Substance: ADALIMUMAB
     Dosage: 40 MG, 2 WEEK
     Route: 058
     Dates: start: 20151011, end: 20170118

REACTIONS (8)
  - Cardiac arrest [Recovered/Resolved]
  - Procedural complication [Recovered/Resolved]
  - Large intestinal stenosis [Recovered/Resolved]
  - Acute kidney injury [Recovered/Resolved]
  - Pneumothorax [Recovered/Resolved]
  - Brain injury [Not Recovered/Not Resolved]
  - Sepsis [Recovered/Resolved]
  - Air embolism [Recovered/Resolved]

NARRATIVE: CASE EVENT DATE: 20170130
